FAERS Safety Report 16895266 (Version 1)
Quarter: 2019Q4

REPORT INFORMATION
  Report Type: Spontaneous
  Country: US (occurrence: US)
  Receive Date: 20191008
  Receipt Date: 20191008
  Transmission Date: 20200122
  Serious: No
  Sender: FDA-Public Use
  Company Number: US-INDIVIOR US-INDV-116800-2019

PATIENT
  Sex: Male

DRUGS (1)
  1. SUBOXONE [Suspect]
     Active Substance: BUPRENORPHINE HYDROCHLORIDE\NALOXONE HYDROCHLORIDE
     Indication: PRODUCT USED FOR UNKNOWN INDICATION
     Dosage: UNK
     Route: 065

REACTIONS (7)
  - Gallbladder disorder [Recovered/Resolved]
  - Hepatic steatosis [Unknown]
  - Abdominal pain [Unknown]
  - Mood altered [Unknown]
  - Product preparation issue [Unknown]
  - Rash [Unknown]
  - Substance abuse [Recovered/Resolved]
